FAERS Safety Report 6284498-2 (Version None)
Quarter: 2009Q3

REPORT INFORMATION
  Report Type: 
  Country: None (occurrence: None)
  Receive Date: 20090727
  Receipt Date: 20090715
  Transmission Date: 20100115
  Serious: Yes (Hospitalization)
  Sender: FDA-Public Use
  Company Number: FR-AMGEN-QUU355906

PATIENT
  Sex: Male

DRUGS (4)
  1. NEUPOGEN [Suspect]
     Indication: DRUG USE FOR UNKNOWN INDICATION
     Route: 058
     Dates: start: 20090615, end: 20090630
  2. NEORAL [Concomitant]
     Dates: start: 20090201
  3. CELLCEPT [Concomitant]
     Dates: start: 20090201
  4. SOLUPRED [Concomitant]
     Dates: start: 20090201

REACTIONS (3)
  - MUSCULAR WEAKNESS [None]
  - OEDEMA PERIPHERAL [None]
  - VISION BLURRED [None]
